FAERS Safety Report 7496010-0 (Version None)
Quarter: 2011Q2

REPORT INFORMATION
  Report Type: 
  Country: None (occurrence: None)
  Receive Date: 20110513
  Receipt Date: 20110428
  Transmission Date: 20111010
  Serious: Yes (Hospitalization)
  Sender: FDA-Public Use
  Company Number: HA11-092-AE

PATIENT
  Sex: Female

DRUGS (1)
  1. CITALOPRAM HYDROBROMIDE [Suspect]
     Indication: DEPRESSION
     Dosage: ORAL, 20 MG ONCE A DAY
     Route: 048

REACTIONS (3)
  - CONGENITAL PULMONARY VALVE DISORDER [None]
  - PATENT DUCTUS ARTERIOSUS [None]
  - MATERNAL DRUGS AFFECTING FOETUS [None]
